FAERS Safety Report 6207124-7 (Version None)
Quarter: 2009Q2

REPORT INFORMATION
  Report Type: 
  Country: None (occurrence: None)
  Receive Date: 20090528
  Receipt Date: 20090119
  Transmission Date: 20091009
  Serious: Yes (Life-Threatening)
  Sender: FDA-Public Use
  Company Number: FR-PFIZER INC-2009159583

PATIENT
  Sex: Female

DRUGS (4)
  1. SOLU-MEDROL [Suspect]
     Indication: PREMEDICATION
     Dosage: 80 MG, CYCLIC
     Route: 042
  2. PACLITAXEL [Suspect]
     Dosage: 140 MG, CYCLIC
     Route: 042
     Dates: end: 20081229
  3. AVASTIN [Suspect]
     Dosage: 700 MG, CYCLIC
     Route: 042
     Dates: end: 20081229
  4. ONDASETRON [Suspect]
     Indication: PREMEDICATION
     Dosage: 8 ML, CYCLIC
     Route: 042
     Dates: end: 20081229

REACTIONS (3)
  - COUGH [None]
  - DYSPNOEA [None]
  - HYPERSENSITIVITY [None]
